FAERS Safety Report 7501524-0 (Version None)
Quarter: 2011Q2

REPORT INFORMATION
  Report Type: 
  Country: None (occurrence: None)
  Receive Date: 20110524
  Receipt Date: 20110518
  Transmission Date: 20111010
  Serious: Yes (Hospitalization)
  Sender: FDA-Public Use
  Company Number: PHHO2010US05691

PATIENT
  Sex: Male
  Weight: 79 kg

DRUGS (2)
  1. ZORTRESS [Suspect]
     Indication: LIVER TRANSPLANT
     Dosage: 3MG AM, 2MG PM
     Route: 048
     Dates: start: 20091125, end: 20100407
  2. TACROLIMUS [Suspect]
     Indication: LIVER TRANSPLANT

REACTIONS (1)
  - ABDOMINAL PAIN [None]
